FAERS Safety Report 9556233 (Version 3)
Quarter: 2014Q1

REPORT INFORMATION
  Report Type: Report from Study
  Country: FR (occurrence: FR)
  Receive Date: 20130926
  Receipt Date: 20140102
  Transmission Date: 20141002
  Serious: Yes (Hospitalization)
  Sender: FDA-Public Use
  Company Number: FR-SANOFI-AVENTIS-2013SA092654

PATIENT
  Age: 46 Year
  Sex: Male

DRUGS (36)
  1. AFLIBERCEPT [Suspect]
     Indication: COLORECTAL CANCER METASTATIC
     Route: 041
     Dates: start: 20130130, end: 20130130
  2. AFLIBERCEPT [Suspect]
     Indication: COLORECTAL CANCER METASTATIC
     Route: 041
     Dates: start: 20130408, end: 20130408
  3. AFLIBERCEPT [Suspect]
     Indication: COLORECTAL CANCER METASTATIC
     Route: 041
  4. 5-FU [Suspect]
     Indication: COLORECTAL CANCER METASTATIC
     Route: 040
     Dates: start: 20130130, end: 20130130
  5. 5-FU [Suspect]
     Indication: COLORECTAL CANCER METASTATIC
     Route: 042
     Dates: start: 20130130
  6. 5-FU [Suspect]
     Indication: COLORECTAL CANCER METASTATIC
     Route: 040
     Dates: start: 20130422, end: 20130422
  7. 5-FU [Suspect]
     Indication: COLORECTAL CANCER METASTATIC
     Route: 042
     Dates: start: 20130422
  8. IRINOTECAN [Suspect]
     Indication: COLORECTAL CANCER METASTATIC
     Route: 041
     Dates: start: 20130130, end: 20130130
  9. IRINOTECAN [Suspect]
     Indication: COLORECTAL CANCER METASTATIC
     Route: 041
     Dates: start: 20130422, end: 20130422
  10. LEUCOVORIN [Suspect]
     Indication: COLORECTAL CANCER METASTATIC
     Route: 041
     Dates: start: 20130130, end: 20130130
  11. LEUCOVORIN [Suspect]
     Indication: COLORECTAL CANCER METASTATIC
     Route: 041
     Dates: start: 20130422, end: 20130422
  12. BISPHOSPHONATES [Concomitant]
     Dates: start: 20111208
  13. ANALGESICS [Concomitant]
     Dates: start: 20130131
  14. ANALGESICS [Concomitant]
     Dates: start: 20130130
  15. ANXIOLYTICS [Concomitant]
     Dates: start: 20130128
  16. ANXIOLYTICS [Concomitant]
     Dates: start: 20130123
  17. HEPARIN [Concomitant]
     Dates: start: 20130123
  18. HEPARIN [Concomitant]
     Dates: start: 20130304, end: 20130305
  19. HEPARIN [Concomitant]
     Dates: start: 20130306
  20. SMECTA [Concomitant]
     Dates: start: 20130228
  21. LOPERAMIDE [Concomitant]
     Dates: start: 20130220
  22. ANTICHOLINERGICS [Concomitant]
     Dates: start: 20130130, end: 20130130
  23. ANTICHOLINERGICS [Concomitant]
     Dates: start: 20130213, end: 20130213
  24. ANTICHOLINERGICS [Concomitant]
     Dates: start: 20130227, end: 20130227
  25. ANTICHOLINERGICS [Concomitant]
     Dates: start: 20130313, end: 20130313
  26. ANTICHOLINERGICS [Concomitant]
     Dates: start: 20130329, end: 20130329
  27. ANTICHOLINERGICS [Concomitant]
     Dates: start: 20130408, end: 20130408
  28. ANTICHOLINERGICS [Concomitant]
     Dates: start: 20130422, end: 20130422
  29. SEROTONIN ANTAGONISTS [Concomitant]
     Dates: start: 20130130, end: 20130130
  30. SEROTONIN ANTAGONISTS [Concomitant]
     Dates: start: 20130213, end: 20130213
  31. SEROTONIN ANTAGONISTS [Concomitant]
     Dates: start: 20130227, end: 20130227
  32. SEROTONIN ANTAGONISTS [Concomitant]
     Dates: start: 20130313, end: 20130313
  33. SEROTONIN ANTAGONISTS [Concomitant]
     Dates: start: 20130329, end: 20130329
  34. SEROTONIN ANTAGONISTS [Concomitant]
     Dates: start: 20130408, end: 20130408
  35. SEROTONIN ANTAGONISTS [Concomitant]
     Dates: start: 20130422, end: 20130422
  36. ANTITHROMBOTIC AGENTS [Concomitant]
     Dates: start: 20130304

REACTIONS (1)
  - Urinary retention [Recovered/Resolved]
